FAERS Safety Report 24231936 (Version 1)
Quarter: 2024Q3

REPORT INFORMATION
  Report Type: Spontaneous
  Country: CN (occurrence: CN)
  Receive Date: 20240821
  Receipt Date: 20240821
  Transmission Date: 20241017
  Serious: Yes (Congenital Anomaly, Other)
  Sender: AMGEN
  Company Number: CN-AMGEN-CHNSP2024162347

PATIENT
  Age: 71 Year
  Sex: Male
  Weight: 77 kg

DRUGS (3)
  1. XGEVA [Suspect]
     Active Substance: DENOSUMAB
     Indication: Metastases to bone
     Dosage: 120 MILLIGRAM (FREQUENCY: 1, DURATION OF REGIMEN: 28)
     Route: 058
     Dates: start: 20240416, end: 20240616
  2. XGEVA [Suspect]
     Active Substance: DENOSUMAB
     Dosage: 120 MILLIGRAM (FREQUENCY: 1, DURATION OF REGIMEN: 30)
     Route: 058
     Dates: start: 20240520, end: 20240520
  3. CARBOPLATIN [Concomitant]
     Active Substance: CARBOPLATIN
     Indication: Metastases to bone
     Dosage: 500 MILLIGRAM (1, 21)
     Route: 058
     Dates: start: 20240620, end: 20240620

REACTIONS (2)
  - Cardiac failure [Recovering/Resolving]
  - Hypocalcaemia [Recovering/Resolving]

NARRATIVE: CASE EVENT DATE: 20240620
